FAERS Safety Report 18724721 (Version 2)
Quarter: 2021Q1

REPORT INFORMATION
  Report Type: Spontaneous
  Country: AR (occurrence: AR)
  Receive Date: 20210111
  Receipt Date: 20210120
  Transmission Date: 20210419
  Serious: Yes (Disabling, Other)
  Sender: FDA-Public Use
  Company Number: AR-PFIZER INC-2021009951

PATIENT
  Age: 68 Year
  Sex: Female

DRUGS (1)
  1. ENBREL [Suspect]
     Active Substance: ETANERCEPT
     Dosage: UNK

REACTIONS (5)
  - Arthritis [Unknown]
  - Mobility decreased [Unknown]
  - Diabetes mellitus [Unknown]
  - Hypertension [Unknown]
  - Gait inability [Unknown]

NARRATIVE: CASE EVENT DATE: 201609
